FAERS Safety Report 13486231 (Version 9)
Quarter: 2018Q1

REPORT INFORMATION
  Report Type: Spontaneous
  Country: US (occurrence: US)
  Receive Date: 20170426
  Receipt Date: 20180322
  Transmission Date: 20180508
  Serious: No
  Sender: FDA-Public Use
  Company Number: US-INCYTE CORPORATION-2017IN003073

PATIENT

DRUGS (15)
  1. JAKAFI [Suspect]
     Active Substance: RUXOLITINIB
     Dosage: 5 MG, BID
     Route: 048
     Dates: start: 20170414, end: 20171216
  2. AGGRENOX [Concomitant]
     Active Substance: ASPIRIN\DIPYRIDAMOLE
     Indication: PRODUCT USED FOR UNKNOWN INDICATION
  3. JAKAFI [Suspect]
     Active Substance: RUXOLITINIB
     Dosage: 10 MG, BID
     Route: 048
     Dates: start: 20170414
  4. ALBUTEROL                          /00139501/ [Concomitant]
     Active Substance: ALBUTEROL
     Indication: PRODUCT USED FOR UNKNOWN INDICATION
  5. DANAZOL. [Concomitant]
     Active Substance: DANAZOL
     Indication: HAEMOGLOBIN DECREASED
     Dosage: 200 MG, UNK
     Route: 048
  6. JAKAFI [Suspect]
     Active Substance: RUXOLITINIB
     Indication: MYELOFIBROSIS
     Dosage: 10 MG, BID
     Route: 048
  7. SYMBICORT [Concomitant]
     Active Substance: BUDESONIDE\FORMOTEROL FUMARATE DIHYDRATE
     Indication: PRODUCT USED FOR UNKNOWN INDICATION
  8. SPIRIVA [Concomitant]
     Active Substance: TIOTROPIUM BROMIDE MONOHYDRATE
     Indication: PRODUCT USED FOR UNKNOWN INDICATION
  9. OMEPRAZOLE. [Concomitant]
     Active Substance: OMEPRAZOLE
     Indication: PRODUCT USED FOR UNKNOWN INDICATION
  10. JAKAFI [Suspect]
     Active Substance: RUXOLITINIB
     Dosage: 10 MG IN AM AND 5 MG IN PM
     Dates: end: 201708
  11. JAKAFI [Suspect]
     Active Substance: RUXOLITINIB
     Dosage: 10 MG, BID
     Route: 048
     Dates: start: 20170414
  12. SIMVASTATIN. [Concomitant]
     Active Substance: SIMVASTATIN
     Indication: PRODUCT USED FOR UNKNOWN INDICATION
  13. JAKAFI [Suspect]
     Active Substance: RUXOLITINIB
     Dosage: 5 MG BID
     Route: 048
  14. JAKAFI [Suspect]
     Active Substance: RUXOLITINIB
     Dosage: 10 MG, BID
     Route: 048
  15. IRON [Concomitant]
     Active Substance: IRON
     Indication: PRODUCT USED FOR UNKNOWN INDICATION

REACTIONS (10)
  - Drug ineffective [Unknown]
  - Vomiting [Unknown]
  - Platelet count decreased [Unknown]
  - Asthenia [Unknown]
  - Chest pain [Unknown]
  - Headache [Unknown]
  - Haemoglobin decreased [Unknown]
  - Blood count abnormal [Unknown]
  - Malaise [Unknown]
  - Dyspnoea [Not Recovered/Not Resolved]

NARRATIVE: CASE EVENT DATE: 201704
